FAERS Safety Report 9477392 (Version 2)
Quarter: 2014Q1

REPORT INFORMATION
  Report Type: Spontaneous
  Country: US (occurrence: US)
  Receive Date: 20130826
  Receipt Date: 20140331
  Transmission Date: 20141002
  Serious: No
  Sender: FDA-Public Use
  Company Number: US-009507513-1308USA009041

PATIENT
  Age: 66 Year
  Sex: Male

DRUGS (12)
  1. PEGINTRON [Suspect]
     Indication: POLYMYOSITIS
     Dosage: 64 MICROGRAM, QW, 80/0.5
     Route: 058
     Dates: start: 201303
  2. PEGINTRON [Suspect]
     Indication: HEPATITIS C
  3. LIPITOR [Concomitant]
  4. TOPROL XL TABLETS [Concomitant]
  5. BENICAR [Concomitant]
  6. WELLBUTRIN [Concomitant]
     Dosage: UNK, WELLBUTRIN 300
  7. ASPIRIN [Concomitant]
     Dosage: UNK, ASPIRIN 81
  8. VITAMINS (UNSPECIFIED) [Concomitant]
  9. AMBIEN [Concomitant]
     Dosage: UNK, AMBIEN 10
  10. OMEPRAZOLE [Concomitant]
  11. HYDROCHLOROTHIAZIDE [Concomitant]
     Dosage: UNK, HYDROCHLOROTHIAZIDE 12.5
  12. PREVACID [Concomitant]

REACTIONS (5)
  - Skin discolouration [Unknown]
  - Pain [Unknown]
  - Chest discomfort [Not Recovered/Not Resolved]
  - Alopecia [Not Recovered/Not Resolved]
  - Fatigue [Not Recovered/Not Resolved]
